FAERS Safety Report 7089689-9 (Version None)
Quarter: 2010Q4

REPORT INFORMATION
  Report Type: 
  Country: None (occurrence: None)
  Receive Date: 20101108
  Receipt Date: 20100107
  Transmission Date: 20110411
  Serious: No
  Sender: FDA-Public Use
  Company Number: US-ABBOTT-10P-163-0618877-00

PATIENT

DRUGS (4)
  1. TRICOR [Suspect]
     Dosage: UNKNOWN
  2. NIASPAN [Suspect]
  3. WELCHOL [Suspect]
     Dosage: UNKNOWN
  4. ZETIA [Suspect]
     Dosage: UNKNOWN

REACTIONS (3)
  - BLOOD CREATINE PHOSPHOKINASE INCREASED [None]
  - LIMB DISCOMFORT [None]
  - MUSCULOSKELETAL DISCOMFORT [None]
